FAERS Safety Report 9229313 (Version 1)
Quarter: 2013Q2

REPORT INFORMATION
  Report Type: Spontaneous
  Country: US (occurrence: US)
  Receive Date: 20130412
  Receipt Date: 20130412
  Transmission Date: 20140414
  Serious: Yes (Hospitalization)
  Sender: FDA-Public Use
  Company Number: US-ASTELLAS-2012US010916

PATIENT
  Age: 57 Year
  Sex: Male
  Weight: 106 kg

DRUGS (1)
  1. PROGRAF [Suspect]
     Indication: RENAL TRANSPLANT
     Dosage: 4 MG, BID
     Route: 048
     Dates: start: 200604

REACTIONS (2)
  - Convulsion [Recovering/Resolving]
  - Cerebrovascular accident [Recovering/Resolving]
